FAERS Safety Report 24301416 (Version 2)
Quarter: 2024Q4

REPORT INFORMATION
  Report Type: Spontaneous
  Country: JP (occurrence: JP)
  Receive Date: 20240910
  Receipt Date: 20241009
  Transmission Date: 20250114
  Serious: Yes (Other)
  Sender: GILEAD
  Company Number: JP-GILEAD-2024-0686340

PATIENT
  Age: 58 Year
  Sex: Female

DRUGS (2)
  1. VEMLIDY [Suspect]
     Active Substance: TENOFOVIR ALAFENAMIDE FUMARATE
     Indication: Chronic hepatitis B
     Dosage: 1 DOSAGE FORM
     Route: 048
     Dates: start: 202405
  2. HERBALS [Concomitant]
     Active Substance: HERBALS
     Dosage: UNK

REACTIONS (2)
  - Internal haemorrhage [Recovered/Resolved]
  - Pain in extremity [Recovered/Resolved]

NARRATIVE: CASE EVENT DATE: 20240801
